FAERS Safety Report 15266373 (Version 3)
Quarter: 2020Q4

REPORT INFORMATION
  Report Type: Spontaneous
  Country: AU (occurrence: AU)
  Receive Date: 20180810
  Receipt Date: 20201119
  Transmission Date: 20210113
  Serious: Yes (Congenital Anomaly)
  Sender: FDA-Public Use
  Company Number: AU-JNJFOC-20180807906

PATIENT

DRUGS (1)
  1. STELARA [Suspect]
     Active Substance: USTEKINUMAB
     Indication: CROHN^S DISEASE
     Route: 064
     Dates: start: 20170410, end: 20180515

REACTIONS (2)
  - Foetal exposure during pregnancy [Recovered/Resolved]
  - Conjoined twins [Unknown]

NARRATIVE: CASE EVENT DATE: 201805
